FAERS Safety Report 15674206 (Version 1)
Quarter: 2018Q4

REPORT INFORMATION
  Report Type: Spontaneous
  Country: DE (occurrence: DE)
  Receive Date: 20181130
  Receipt Date: 20181130
  Transmission Date: 20190205
  Serious: Yes (Hospitalization, Other)
  Sender: FDA-Public Use
  Company Number: DE-AMGEN-DEUSP2018169415

PATIENT
  Sex: Female

DRUGS (1)
  1. PROLIA [Suspect]
     Active Substance: DENOSUMAB
     Indication: OSTEOPOROSIS
     Dosage: UNK
     Route: 065

REACTIONS (6)
  - Acute kidney injury [Unknown]
  - Rheumatoid arthritis [Unknown]
  - Urinary incontinence [Unknown]
  - Hypertension [Unknown]
  - Urinary tract infection [Unknown]
  - Angiosclerosis [Unknown]
